FAERS Safety Report 5363677-2 (Version None)
Quarter: 2007Q2

REPORT INFORMATION
  Report Type: 
  Country: None (occurrence: None)
  Receive Date: 20070620
  Receipt Date: 20070613
  Transmission Date: 20071010
  Serious: Yes (Other)
  Sender: FDA-Public Use
  Company Number: ES-ROCHE-502414

PATIENT
  Age: 35 Year
  Sex: Female

DRUGS (2)
  1. MEFLOQUINE HCL [Suspect]
     Indication: MALARIA PROPHYLAXIS
     Route: 065
     Dates: start: 20060301
  2. HEPATITIS B VACCINE [Concomitant]
     Dates: start: 20060301

REACTIONS (1)
  - HEPATITIS TOXIC [None]
